FAERS Safety Report 17878189 (Version 1)
Quarter: 2020Q2

REPORT INFORMATION
  Report Type: Spontaneous
  Country: US (occurrence: US)
  Receive Date: 20200610
  Receipt Date: 20200610
  Transmission Date: 20200714
  Serious: No
  Sender: FDA-Public Use
  Company Number: NVSC2020US161167

PATIENT
  Age: 90 Year
  Sex: Female

DRUGS (1)
  1. VOLTARENE (DICLOFENAC) [Suspect]
     Active Substance: DICLOFENAC
     Indication: ARTHRITIS
     Dosage: UNK
     Route: 065
     Dates: start: 20200529, end: 20200529

REACTIONS (1)
  - Product administered at inappropriate site [Unknown]

NARRATIVE: CASE EVENT DATE: 20200529
